FAERS Safety Report 9184255 (Version 1)
Quarter: 2012Q4

REPORT INFORMATION
  Report Type: 
  Country: US (occurrence: US)
  Receive Date: 20121031
  Receipt Date: 20121031
  Transmission Date: 20130627
  Serious: Yes (Hospitalization)
  Sender: FDA-Public Use
  Company Number: PHEH2012US021069

PATIENT
  Sex: Male

DRUGS (7)
  1. GLEEVEC [Suspect]
     Indication: HYPEREOSINOPHILIC SYNDROME
  2. LASIX [Concomitant]
  3. ALDACTONE [Concomitant]
  4. DIGOXIN [Concomitant]
  5. SYNTHYROID [Concomitant]
  6. ALBUTEROL [Concomitant]
  7. CARDIZEM [Concomitant]

REACTIONS (3)
  - Hepatic cirrhosis [Unknown]
  - Hepatosplenomegaly [Unknown]
  - Ascites [Unknown]
